FAERS Safety Report 9404538 (Version 2)
Quarter: 2013Q3

REPORT INFORMATION
  Report Type: Spontaneous
  Country: US (occurrence: US)
  Receive Date: 20130717
  Receipt Date: 20130905
  Transmission Date: 20140515
  Serious: Yes (Death, Hospitalization)
  Sender: FDA-Public Use
  Company Number: US-ASTELLAS-2013US007504

PATIENT
  Sex: Male

DRUGS (22)
  1. PROGRAF [Suspect]
     Indication: RENAL TRANSPLANT
     Dosage: 1.5 MG, UID/QD
     Route: 048
     Dates: start: 200205
  2. PROGRAF [Suspect]
     Dosage: 0.5 MG, BID
     Route: 048
     Dates: end: 20130420
  3. ALLOPURINOL [Concomitant]
     Indication: PRODUCT USED FOR UNKNOWN INDICATION
     Dosage: 100 MG, UID/QD
     Route: 048
  4. HEPARIN [Concomitant]
     Indication: PRODUCT USED FOR UNKNOWN INDICATION
     Dosage: 5000 UU/ML, Q8 HOURS
     Route: 058
  5. ALBUTEROL                          /00139501/ [Concomitant]
     Indication: DYSPNOEA
     Dosage: 2.5 MG, Q8 HOURS, PRN
     Route: 045
  6. ONDANSETRON [Concomitant]
     Indication: NAUSEA
     Dosage: 4 MG, Q6 HOURS
     Route: 048
  7. ONDANSETRON [Concomitant]
     Indication: VOMITING
  8. CLONIDINE [Concomitant]
     Indication: HYPERTENSION
     Dosage: 0.1 MG, Q6 HOURS, PRN
     Route: 048
  9. ATORVASTATIN [Concomitant]
     Indication: PRODUCT USED FOR UNKNOWN INDICATION
     Dosage: 10 MG, QHS
     Route: 048
  10. TAMSULOSIN [Concomitant]
     Indication: PRODUCT USED FOR UNKNOWN INDICATION
     Dosage: 0.4 MG, QHS
     Route: 048
  11. METOPROLOL [Concomitant]
     Indication: PRODUCT USED FOR UNKNOWN INDICATION
     Dosage: UNK
     Route: 048
  12. MYCOPHENOLIC ACID [Concomitant]
     Indication: PRODUCT USED FOR UNKNOWN INDICATION
     Dosage: 180 MG, TID
     Route: 048
  13. ZOLPIDEM [Concomitant]
     Indication: INSOMNIA
     Dosage: 5 MG, QHS, PRN
     Route: 048
  14. ACETAMINOPHEN W/OXYCODONE [Concomitant]
     Indication: PAIN
     Dosage: UNK
     Route: 048
  15. IPRATROPIUM [Concomitant]
     Indication: DYSPNOEA
     Dosage: UNK, PRN
     Route: 045
  16. ASPIRIN [Concomitant]
     Indication: PRODUCT USED FOR UNKNOWN INDICATION
     Dosage: 325 MG, UID/QD
     Route: 048
  17. NEPHROCAPS                         /01801401/ [Concomitant]
     Indication: PRODUCT USED FOR UNKNOWN INDICATION
     Dosage: 1 DF, UID/QD
     Route: 048
  18. FLUCONAZOL [Concomitant]
     Indication: PRODUCT USED FOR UNKNOWN INDICATION
     Dosage: 400 MG, UID/QD
     Route: 048
  19. ALPRAZOLAM [Concomitant]
     Indication: ANXIETY
     Dosage: 0.5 MG, BID, PRN
     Route: 048
  20. EPOXITIN                           /00909301/ [Concomitant]
     Indication: PRODUCT USED FOR UNKNOWN INDICATION
     Dosage: UNK, MWF
     Route: 058
  21. FAMOTIDINE [Concomitant]
     Indication: PRODUCT USED FOR UNKNOWN INDICATION
     Dosage: 20 MG, UNKNOWN/D
     Route: 048
  22. DOCUSATE SODIUM [Concomitant]
     Indication: CONSTIPATION
     Dosage: 100 MG, UID/QD, PRN
     Route: 048

REACTIONS (25)
  - Renal osteodystrophy [Unknown]
  - Hypoalbuminaemia [Unknown]
  - Localised intraabdominal fluid collection [Unknown]
  - Fluid overload [Unknown]
  - Pulmonary oedema [Unknown]
  - Atelectasis [Unknown]
  - Dyspnoea [Unknown]
  - Asthenia [Fatal]
  - Cardiopulmonary failure [Fatal]
  - Nephropathy [Unknown]
  - Anaemia [Unknown]
  - Transplant dysfunction [Unknown]
  - Pleural effusion [Unknown]
  - Urinoma [Fatal]
  - Metabolic encephalopathy [Fatal]
  - Enterovesical fistula [Fatal]
  - Cardio-respiratory arrest [Fatal]
  - Coronary artery occlusion [Fatal]
  - Renal failure chronic [Fatal]
  - Malnutrition [Fatal]
  - Disease progression [None]
  - Cardiac failure congestive [Fatal]
  - Sepsis [Fatal]
  - Convulsion [Fatal]
  - Diabetes mellitus [Fatal]
